FAERS Safety Report 7070631-1 (Version None)
Quarter: 2010Q4

REPORT INFORMATION
  Report Type: 
  Country: None (occurrence: None)
  Receive Date: 20101029
  Receipt Date: 20101024
  Transmission Date: 20110411
  Serious: Yes (Other)
  Sender: FDA-Public Use
  Company Number: US-PFIZER INC-2010115607

PATIENT
  Sex: Female
  Weight: 53.515 kg

DRUGS (7)
  1. CHANTIX [Suspect]
     Indication: SMOKING CESSATION THERAPY
     Dosage: 1 MG, 2X/DAY
     Route: 048
     Dates: start: 20100901
  2. COREG [Concomitant]
     Dosage: 6.25 MG, 2X/DAY
  3. PLAVIX [Concomitant]
     Dosage: 75 MG, DAILY
  4. ASPIRIN [Concomitant]
     Dosage: 81 MG, DAILY
  5. FAMOTIDINE [Concomitant]
     Dosage: 40 MG, 2X/DAY
  6. PRAVASTATIN [Concomitant]
     Indication: BLOOD CHOLESTEROL INCREASED
     Dosage: 20 MG, DAILY
  7. LEXAPRO [Concomitant]
     Dosage: 20 MG, DAILY

REACTIONS (5)
  - BLOOD CHOLESTEROL INCREASED [None]
  - CARDIAC FLUTTER [None]
  - INCORRECT DOSE ADMINISTERED [None]
  - NAUSEA [None]
  - TREATMENT NONCOMPLIANCE [None]
